FAERS Safety Report 11427232 (Version 2)
Quarter: 2016Q1

REPORT INFORMATION
  Report Type: Report from Study
  Country: US (occurrence: US)
  Receive Date: 20150827
  Receipt Date: 20160208
  Transmission Date: 20160525
  Serious: Yes (Other)
  Sender: FDA-Public Use
  Company Number: US-SA-2014SA109088

PATIENT
  Age: 56 Year
  Sex: Female

DRUGS (1)
  1. FABRAZYME [Suspect]
     Active Substance: AGALSIDASE BETA
     Indication: FABRY^S DISEASE
     Route: 042
     Dates: start: 200610

REACTIONS (7)
  - Hydrocephalus [Unknown]
  - Vulval disorder [Unknown]
  - Skin haemorrhage [Unknown]
  - Fibromyalgia [Unknown]
  - Skin lesion [Unknown]
  - Burning sensation [Unknown]
  - Pineal gland cyst [Unknown]

NARRATIVE: CASE EVENT DATE: 2012
